FAERS Safety Report 5700563-X (Version None)
Quarter: 2008Q2

REPORT INFORMATION
  Report Type: 
  Country: None (occurrence: None)
  Receive Date: 20080410
  Receipt Date: 20080403
  Transmission Date: 20081010
  Serious: Yes (Hospitalization)
  Sender: FDA-Public Use
  Company Number: JP-PFIZER INC-2008029825

PATIENT
  Age: 39 Year
  Sex: Female

DRUGS (7)
  1. ATARAX [Suspect]
     Dosage: TEXT:1 DOSE FORM
     Route: 042
     Dates: start: 20080208, end: 20080210
  2. SOLULACT [Suspect]
     Route: 042
  3. ELIETEN [Suspect]
     Dosage: TEXT:1 DOSE FORM
     Route: 042
  4. SOLITA-T3 INJECTION [Concomitant]
     Route: 042
  5. LOXONIN [Concomitant]
     Route: 048
  6. MUCOSTA [Concomitant]
     Route: 048
  7. ADOFEED [Concomitant]

REACTIONS (1)
  - STEVENS-JOHNSON SYNDROME [None]
